FAERS Safety Report 5888765-3 (Version None)
Quarter: 2008Q3

REPORT INFORMATION
  Report Type: 
  Country: None (occurrence: None)
  Receive Date: 20080916
  Receipt Date: 20080916
  Transmission Date: 20090109
  Serious: Yes (Life-Threatening, Other)
  Sender: FDA-Public Use
  Company Number: None

PATIENT
  Age: 14 Year
  Sex: Female
  Weight: 52.1637 kg

DRUGS (1)
  1. REGLAN [Suspect]
     Indication: NAUSEA
     Dates: start: 20080905, end: 20080907

REACTIONS (7)
  - DISORIENTATION [None]
  - DYSKINESIA [None]
  - HYPERSENSITIVITY [None]
  - HYPOAESTHESIA [None]
  - NAUSEA [None]
  - NECK PAIN [None]
  - PAIN [None]
